FAERS Safety Report 19116812 (Version 3)
Quarter: 2021Q3

REPORT INFORMATION
  Report Type: Spontaneous
  Country: JP (occurrence: JP)
  Receive Date: 20210409
  Receipt Date: 20210702
  Transmission Date: 20211014
  Serious: Yes (Hospitalization, Other)
  Sender: FDA-Public Use
  Company Number: JP-ASTRAZENECA-2021A026995

PATIENT
  Age: 23240 Day
  Sex: Male
  Weight: 63 kg

DRUGS (3)
  1. FASENRA [Suspect]
     Active Substance: BENRALIZUMAB
     Indication: ASTHMA
     Route: 055
     Dates: start: 20210128, end: 20210225
  2. ENERZAIR [Suspect]
     Active Substance: GLYCOPYRROLATE\INDACATEROL\MOMETASONE FUROATE
     Indication: ASTHMA
     Dosage: DOSE UNKNOWN, HIGH DOSE, EVERY DAY
     Route: 055
     Dates: start: 20210128, end: 20210311
  3. MEPTIN AIR [Suspect]
     Active Substance: PROCATEROL HYDROCHLORIDE
     Indication: ASTHMA
     Route: 055
     Dates: start: 20201228

REACTIONS (9)
  - Chills [Recovered/Resolved]
  - Malaise [Recovered/Resolved]
  - Cough [Unknown]
  - Bronchopulmonary aspergillosis allergic [Recovering/Resolving]
  - Headache [Recovered/Resolved]
  - Pyrexia [Recovered/Resolved]
  - C-reactive protein increased [Recovering/Resolving]
  - Pneumonia bacterial [Unknown]
  - Nausea [Recovered/Resolved]

NARRATIVE: CASE EVENT DATE: 20210128
